FAERS Safety Report 6454709-9 (Version None)
Quarter: 2009Q4

REPORT INFORMATION
  Report Type: 
  Country: None (occurrence: None)
  Receive Date: 20091118
  Receipt Date: 20091112
  Transmission Date: 20100525
  Serious: Yes (Hospitalization, Disabling, Other)
  Sender: FDA-Public Use
  Company Number: GB-EBEWE-1373MTX09

PATIENT
  Age: 63 Year
  Sex: Female
  Weight: 28.0323 kg

DRUGS (14)
  1. ENBREL [Suspect]
     Indication: ANKYLOSING SPONDYLITIS
     Dosage: 50MG/WEEK, WEEKLY, SC
     Route: 058
     Dates: start: 20090406, end: 20090501
  2. METHOTREXATE [Suspect]
     Indication: ANKYLOSING SPONDYLITIS
  3. SULFASALAZINE [Suspect]
  4. CHOLESTYRAMINE [Concomitant]
  5. CODEINE [Concomitant]
  6. CO-TRIMOXAZOLE [Concomitant]
  7. ETHAMBUTOL HYDROCHLORIDE [Concomitant]
  8. FLUOXETINE [Concomitant]
  9. MS CONTIN [Concomitant]
  10. OMEPRAZOLE [Concomitant]
  11. PARACETAMOL [Concomitant]
  12. PYRIDOXINE [Concomitant]
  13. RAMIPRIL [Concomitant]
  14. RIFATER [Concomitant]

REACTIONS (7)
  - ANAEMIA [None]
  - BLOOD ALBUMIN DECREASED [None]
  - DIARRHOEA [None]
  - LYMPHADENOPATHY [None]
  - PLEURAL EFFUSION [None]
  - WEIGHT DECREASED [None]
  - WHIPPLE'S DISEASE [None]
